FAERS Safety Report 6707807-6 (Version None)
Quarter: 2010Q2

REPORT INFORMATION
  Report Type: 
  Country: None (occurrence: None)
  Receive Date: 20100503
  Receipt Date: 20091202
  Transmission Date: 20101027
  Serious: No
  Sender: FDA-Public Use
  Company Number: US-ASTRAZENECA-2009SE30013

PATIENT
  Age: 50 Year
  Sex: Female
  Weight: 95.3 kg

DRUGS (2)
  1. NEXIUM [Suspect]
     Indication: ABDOMINAL DISCOMFORT
     Route: 048
     Dates: start: 20091120, end: 20091127
  2. LORAZEPAM [Concomitant]
     Indication: ANXIETY

REACTIONS (6)
  - ADVERSE DRUG REACTION [None]
  - DIZZINESS [None]
  - HYPOTONIA [None]
  - PHARYNGEAL OEDEMA [None]
  - RASH [None]
  - SWOLLEN TONGUE [None]
